FAERS Safety Report 6195751-5 (Version None)
Quarter: 2009Q2

REPORT INFORMATION
  Report Type: 
  Country: None (occurrence: None)
  Receive Date: 20090520
  Receipt Date: 20071112
  Transmission Date: 20091009
  Serious: Yes (Other)
  Sender: FDA-Public Use
  Company Number: US-ASTRAZENECA-2006UW04738

PATIENT
  Age: 13584 Day
  Sex: Female
  Weight: 187 kg

DRUGS (29)
  1. SEROQUEL [Suspect]
     Indication: BIPOLAR DISORDER
     Route: 048
     Dates: start: 20040101
  2. SEROQUEL [Suspect]
     Dosage: 100-400 MG
     Route: 048
     Dates: start: 20040426
  3. ZYPREXA [Suspect]
     Indication: BIPOLAR DISORDER
     Route: 065
     Dates: start: 20020101, end: 20050101
  4. RISPERDAL [Concomitant]
     Indication: BIPOLAR DISORDER
     Route: 065
     Dates: end: 20000101
  5. LITHIUM [Concomitant]
     Route: 065
  6. SYNTHROID [Concomitant]
     Dosage: 100-1120 MG
     Route: 065
  7. PAXIL [Concomitant]
     Route: 065
  8. AMBIEN [Concomitant]
     Route: 048
  9. LEXAPRO [Concomitant]
     Route: 065
  10. PROMETHAZINE [Concomitant]
     Route: 065
  11. CIPROFLOXACIN [Concomitant]
     Route: 065
  12. CARISOPRODOL [Concomitant]
     Route: 065
  13. DOXYCYCLINE [Concomitant]
     Route: 065
  14. OXYCODONE HCL [Concomitant]
     Route: 065
  15. METRONIDAZOLE [Concomitant]
     Route: 065
  16. ACETAMINOPHEN [Concomitant]
     Route: 065
  17. DIFLUNISAL [Concomitant]
     Route: 065
  18. MIRTAZAPINE [Concomitant]
     Route: 065
  19. CLOTRIMAZOLE [Concomitant]
     Route: 065
  20. CLINDAMYCIN HCL [Concomitant]
     Route: 065
  21. ABILIFY [Concomitant]
     Route: 065
  22. PRILOSEC [Concomitant]
     Route: 065
  23. PONSTEL [Concomitant]
     Route: 065
  24. GUAIFENESIN [Concomitant]
     Route: 065
  25. HYDROCODONE BITARTRATE [Concomitant]
     Route: 065
  26. LAMICTAL [Concomitant]
     Route: 065
  27. BROMANATE [Concomitant]
     Route: 065
  28. NALTREXONE HYDROCHLORIDE [Concomitant]
     Route: 065
  29. SULFACETAMIDE SODIUM [Concomitant]
     Route: 065

REACTIONS (16)
  - ALCOHOLISM [None]
  - ANAEMIA [None]
  - BIPOLAR I DISORDER [None]
  - BRONCHOSPASM [None]
  - CONTUSION [None]
  - DIABETES MELLITUS [None]
  - HEPATITIS C [None]
  - LUNG DISORDER [None]
  - MOOD DISORDER DUE TO A GENERAL MEDICAL CONDITION [None]
  - OROPHARYNGEAL PAIN [None]
  - PAIN IN EXTREMITY [None]
  - PNEUMONIA [None]
  - PNEUMONITIS [None]
  - POLYSUBSTANCE DEPENDENCE [None]
  - RASH [None]
  - UPPER RESPIRATORY TRACT INFECTION [None]
